FAERS Safety Report 9304588 (Version 1)
Quarter: 2013Q2

REPORT INFORMATION
  Report Type: Report from Study
  Country: US (occurrence: US)
  Receive Date: 20130523
  Receipt Date: 20130523
  Transmission Date: 20140414
  Serious: Yes (Hospitalization)
  Sender: FDA-Public Use
  Company Number: US-ROCHE-1226792

PATIENT
  Age: 55 Year
  Sex: Male

DRUGS (3)
  1. XELODA [Suspect]
     Indication: THROAT CANCER
     Route: 048
     Dates: start: 20120725, end: 20120812
  2. XELODA [Suspect]
     Route: 048
     Dates: start: 20120828, end: 20120917
  3. XELODA [Suspect]
     Route: 048
     Dates: start: 20130516

REACTIONS (7)
  - Febrile neutropenia [Recovered/Resolved]
  - Mucosal inflammation [Recovered/Resolved]
  - Lip blister [Recovered/Resolved]
  - Oral mucosal blistering [Recovered/Resolved]
  - Diarrhoea [Recovered/Resolved]
  - Intestinal obstruction [Recovered/Resolved]
  - Cerebrovascular accident [Recovered/Resolved]
